FAERS Safety Report 6013126-6 (Version None)
Quarter: 2008Q4

REPORT INFORMATION
  Report Type: 
  Country: None (occurrence: None)
  Receive Date: 20081219
  Receipt Date: 20081210
  Transmission Date: 20090506
  Serious: Yes (Other)
  Sender: FDA-Public Use
  Company Number: US-BIOGENIDEC-2008BI008173

PATIENT
  Age: 60 Year
  Sex: Female
  Weight: 129 kg

DRUGS (2)
  1. TYSABRI [Suspect]
     Indication: MULTIPLE SCLEROSIS
     Route: 042
     Dates: start: 20061006, end: 20080201
  2. TYSABRI [Suspect]
     Route: 042
     Dates: start: 20080401

REACTIONS (8)
  - ASTHENIA [None]
  - EAR INFECTION [None]
  - FATIGUE [None]
  - MALIGNANT MELANOMA [None]
  - MUSCULAR WEAKNESS [None]
  - PSYCHOMOTOR HYPERACTIVITY [None]
  - SENSORY DISTURBANCE [None]
  - VITAMIN D DECREASED [None]
